FAERS Safety Report 9083048 (Version 1)
Quarter: 2013Q1

REPORT INFORMATION
  Report Type: Report from Study
  Country: US (occurrence: US)
  Receive Date: 20130130
  Receipt Date: 20130130
  Transmission Date: 20140127
  Serious: No
  Sender: FDA-Public Use
  Company Number: US-ABBOTT-12P-163-0979446-00

PATIENT
  Sex: Female

DRUGS (2)
  1. HUMIRA [Suspect]
     Indication: PSORIASIS
     Route: 058
     Dates: start: 201106
  2. ORTHO-EVRA [Concomitant]
     Indication: POLYCYSTIC OVARIES
     Dosage: ONCE WEEKLY
     Route: 061

REACTIONS (1)
  - Ear infection [Recovered/Resolved]
